FAERS Safety Report 4601575-X (Version None)
Quarter: 2005Q1

REPORT INFORMATION
  Report Type: 
  Country: None (occurrence: None)
  Receive Date: 20050131
  Receipt Date: 20041101
  Transmission Date: 20050727
  Serious: No
  Sender: FDA-Public Use
  Company Number: 200418602US

PATIENT
  Age: 43 Year
  Sex: Female

DRUGS (3)
  1. KETEK [Suspect]
     Indication: COUGH
     Dosage: 800 X 5 DAYS MG QD PO
     Route: 048
     Dates: start: 20041028, end: 20041101
  2. KETEK [Suspect]
     Indication: SINUSITIS
     Dosage: 800 X 5 DAYS MG QD PO
     Route: 048
     Dates: start: 20041028, end: 20041101
  3. NASACORT [Concomitant]

REACTIONS (5)
  - ABDOMINAL PAIN UPPER [None]
  - ASTHENIA [None]
  - DIARRHOEA HAEMORRHAGIC [None]
  - FATIGUE [None]
  - PYREXIA [None]
